FAERS Safety Report 7588089-2 (Version None)
Quarter: 2011Q3

REPORT INFORMATION
  Report Type: 
  Country: None (occurrence: None)
  Receive Date: 20110705
  Receipt Date: 20110630
  Transmission Date: 20111222
  Serious: No
  Sender: FDA-Public Use
  Company Number: US-PFIZER INC-2011146644

PATIENT
  Sex: Female

DRUGS (5)
  1. VALSARTAN [Suspect]
     Dosage: UNK
  2. ALISKIREN/VALSARTAN [Suspect]
     Dosage: UNK
  3. CLONIDINE [Suspect]
     Dosage: UNK
  4. SPIRONOLACTONE [Suspect]
     Dosage: UNK
  5. NORVASC [Suspect]
     Dosage: UNK

REACTIONS (15)
  - OROPHARYNGEAL PAIN [None]
  - FATIGUE [None]
  - ABDOMINAL PAIN UPPER [None]
  - HEADACHE [None]
  - RHINORRHOEA [None]
  - BLOOD GLUCOSE ABNORMAL [None]
  - DIARRHOEA [None]
  - FEELING ABNORMAL [None]
  - BLOOD PRESSURE INCREASED [None]
  - SLEEP DISORDER [None]
  - COUGH [None]
  - DRY THROAT [None]
  - DRUG INEFFECTIVE [None]
  - DYSPNOEA [None]
  - DIZZINESS [None]
